FAERS Safety Report 8895727 (Version 7)
Quarter: 2013Q3

REPORT INFORMATION
  Report Type: Spontaneous
  Country: US (occurrence: US)
  Receive Date: 20121108
  Receipt Date: 20130916
  Transmission Date: 20140515
  Serious: Yes (Hospitalization, Disabling, Other)
  Sender: FDA-Public Use
  Company Number: US-009507513-1210USA012654

PATIENT
  Sex: Female

DRUGS (6)
  1. FOSAMAX [Suspect]
     Indication: OSTEOPOROSIS
     Dosage: 35 MG, QW
     Route: 048
     Dates: start: 20021107
  2. FOSAMAX [Suspect]
     Indication: SPONDYLITIS
     Dosage: 70 MG, QW
     Route: 048
     Dates: end: 20120528
  3. ALENDRONATE SODIUM [Suspect]
     Indication: SPONDYLITIS
     Dosage: 70 MG, QW
     Route: 048
     Dates: start: 2011, end: 20120528
  4. ALENDRONATE SODIUM [Suspect]
     Indication: OSTEOPOROSIS
  5. ALENDRONATE SODIUM [Suspect]
     Indication: SPONDYLITIS
     Dosage: 70 MG, QW
     Dates: end: 20120528
  6. ALENDRONATE SODIUM [Suspect]
     Indication: OSTEOPOROSIS

REACTIONS (12)
  - Femur fracture [Not Recovered/Not Resolved]
  - Open reduction of fracture [Not Recovered/Not Resolved]
  - Fall [Unknown]
  - Femur fracture [Unknown]
  - Impaired healing [Unknown]
  - Arthritis [Unknown]
  - Pain [Unknown]
  - Tooth extraction [Unknown]
  - Fall [Unknown]
  - Arthralgia [Unknown]
  - Back pain [Unknown]
  - Vertigo [Unknown]
